FAERS Safety Report 7255685-1 (Version None)
Quarter: 2011Q1

REPORT INFORMATION
  Report Type: 
  Country: None (occurrence: None)
  Receive Date: 20110129
  Receipt Date: 20100826
  Transmission Date: 20110831
  Serious: Yes (Hospitalization)
  Sender: FDA-Public Use
  Company Number: US-ABBOTT-10P-163-0666941-00

PATIENT
  Age: 43 Year
  Sex: Female

DRUGS (6)
  1. METFORMIN + ACTOS [Concomitant]
     Indication: DIABETES MELLITUS
  2. LANOXIN [Concomitant]
     Indication: ARRHYTHMIA
  3. HUMIRA [Suspect]
     Indication: PSORIATIC ARTHROPATHY
     Route: 058
     Dates: start: 20100201, end: 20100601
  4. ATENOLOL [Concomitant]
     Indication: TACHYCARDIA
  5. CYMBALTA [Concomitant]
     Indication: DEPRESSION
  6. LISINOPRIL [Concomitant]
     Indication: HYPERTENSION

REACTIONS (3)
  - HYPOAESTHESIA FACIAL [None]
  - VIITH NERVE PARALYSIS [None]
  - HYPERTENSION [None]
